FAERS Safety Report 7257226-1 (Version None)
Quarter: 2011Q1

REPORT INFORMATION
  Report Type: 
  Country: None (occurrence: None)
  Receive Date: 20110129
  Receipt Date: 20100702
  Transmission Date: 20110831
  Serious: No
  Sender: FDA-Public Use
  Company Number: US-ABBOTT-10P-163-0654983-00

PATIENT
  Sex: Female

DRUGS (7)
  1. LORATADINE [Concomitant]
  2. NAPROSYN [Concomitant]
  3. HUMIRA [Suspect]
     Indication: JUVENILE ARTHRITIS
     Route: 058
     Dates: start: 20100701
  4. METHOTREXATE [Concomitant]
  5. SUDAI [Concomitant]
  6. SINGULAIR [Concomitant]
  7. LUCOVORIAN [Concomitant]

REACTIONS (3)
  - WRONG TECHNIQUE IN DRUG USAGE PROCESS [None]
  - INJECTION SITE PAIN [None]
  - INCORRECT DOSE ADMINISTERED [None]
